FAERS Safety Report 8419128-4 (Version None)
Quarter: 2012Q2

REPORT INFORMATION
  Report Type: 
  Country: None (occurrence: None)
  Receive Date: 20120607
  Receipt Date: 20120606
  Transmission Date: 20120825
  Serious: Yes (Other)
  Sender: FDA-Public Use
  Company Number: PHHY2012NL046526

PATIENT
  Sex: Female

DRUGS (4)
  1. ATACAND [Concomitant]
     Dosage: 6 MG, UNK
  2. ASPIRIN [Concomitant]
     Dosage: 100 MG, UNK
  3. ONBREZ [Suspect]
     Indication: ASTHMA
     Dosage: 300 UG, UNK
     Dates: start: 20120410, end: 20120522
  4. HYDROCHLOROTHIAZDE TAB [Concomitant]
     Dosage: 12.5 MG, UNK

REACTIONS (6)
  - PALPITATIONS [None]
  - SYNCOPE [None]
  - TACHYCARDIA [None]
  - FATIGUE [None]
  - SINUS ARREST [None]
  - EXTRASYSTOLES [None]
